FAERS Safety Report 17362239 (Version 1)
Quarter: 2020Q1

REPORT INFORMATION
  Report Type: Spontaneous
  Country: CH (occurrence: CH)
  Receive Date: 20200203
  Receipt Date: 20200203
  Transmission Date: 20200409
  Serious: Yes (Other)
  Sender: FDA-Public Use
  Company Number: CH-FERRINGPH-2020FE00442

PATIENT
  Age: 37 Year
  Sex: Female

DRUGS (19)
  1. CETROTIDE [Suspect]
     Active Substance: CETRORELIX ACETATE
     Indication: ASSISTED FERTILISATION
     Dosage: UNK
     Route: 065
     Dates: start: 201901, end: 201901
  2. GABAPENTINE [Concomitant]
     Active Substance: GABAPENTIN
     Indication: INSOMNIA
     Dosage: UNK
     Dates: start: 201901
  3. GONAL-F [Suspect]
     Active Substance: FOLLITROPIN
     Indication: ASSISTED FERTILISATION
     Dosage: 225 IU
     Route: 058
     Dates: start: 201901, end: 201901
  4. LEVONORGESTREL + ETINILESTRADIOL [Suspect]
     Active Substance: ETHINYL ESTRADIOL\LEVONORGESTREL
     Indication: ASSISTED FERTILISATION
     Dosage: UNK
     Route: 065
     Dates: start: 201901, end: 201901
  5. IMOVANE [Concomitant]
     Active Substance: ZOPICLONE
     Dosage: UNK
     Dates: start: 201802, end: 201807
  6. VITEX AGNUS-CASTUS [Concomitant]
     Indication: INSOMNIA
     Dosage: UNK
     Dates: start: 201909
  7. DECAPEPTYL (ACETATE) [Suspect]
     Active Substance: TRIPTORELIN ACETATE
     Indication: ASSISTED FERTILISATION
     Dosage: 0.1 MG, ONCE/SINGLE
     Route: 058
     Dates: start: 201901, end: 201901
  8. MERIONAL [Suspect]
     Active Substance: MENOTROPINS
     Indication: ASSISTED FERTILISATION
     Dosage: 225 IU FOR 10 DAYS
     Route: 065
     Dates: start: 201901, end: 201901
  9. DALMADORM [Concomitant]
     Active Substance: FLURAZEPAM HYDROCHLORIDE
     Dosage: UNK
     Dates: start: 201802, end: 201807
  10. DECAPEPTYL (ACETATE) [Suspect]
     Active Substance: TRIPTORELIN ACETATE
     Dosage: 0.1 MG, ONCE/SINGLE
     Route: 058
     Dates: start: 201810, end: 201810
  11. GABAPENTINE [Concomitant]
     Active Substance: GABAPENTIN
     Indication: ANXIETY
  12. ORGALUTRAN [Suspect]
     Active Substance: GANIRELIX ACETATE
     Indication: ASSISTED FERTILISATION
     Dosage: 5 INJECTIONS OF 0.25 MG
     Route: 058
     Dates: start: 201810, end: 201810
  13. TRAZODONE [Concomitant]
     Active Substance: TRAZODONE HYDROCHLORIDE
     Dosage: UNK
     Dates: start: 201808, end: 201810
  14. MENOPUR [Suspect]
     Active Substance: FOLLITROPIN\LUTEINIZING HORMONE
     Indication: ASSISTED FERTILISATION
     Dosage: 225 IU
     Route: 065
     Dates: start: 201901, end: 201901
  15. PUREGON [FOLLITROPIN BETA] [Suspect]
     Active Substance: FOLLITROPIN
     Indication: ASSISTED FERTILISATION
     Dosage: 225 IU
     Route: 065
     Dates: start: 201901, end: 201901
  16. TRAZODONE [Concomitant]
     Active Substance: TRAZODONE HYDROCHLORIDE
     Indication: INSOMNIA
     Dosage: UNK
     Dates: start: 201901, end: 2019
  17. GONAL-F [Suspect]
     Active Substance: FOLLITROPIN
     Dosage: 10 INJECTIONS OF 30 IU
     Route: 058
     Dates: start: 201810, end: 201810
  18. AZITHROMYCINE [Suspect]
     Active Substance: AZITHROMYCIN
     Indication: ASSISTED FERTILISATION
     Dosage: 1 G
     Route: 065
     Dates: start: 201810, end: 201810
  19. ZOLOFT [Concomitant]
     Active Substance: SERTRALINE HYDROCHLORIDE
     Dosage: UNK
     Dates: start: 201802, end: 201810

REACTIONS (3)
  - Influenza like illness [Recovered/Resolved]
  - Product use in unapproved indication [Recovering/Resolving]
  - Premenstrual syndrome [Recovering/Resolving]

NARRATIVE: CASE EVENT DATE: 201810
